FAERS Safety Report 7259627-4 (Version None)
Quarter: 2011Q1

REPORT INFORMATION
  Report Type: 
  Country: None (occurrence: None)
  Receive Date: 20110130
  Receipt Date: 20101012
  Transmission Date: 20110831
  Serious: No
  Sender: FDA-Public Use
  Company Number: PR-ABBOTT-10P-131-0671271-00

PATIENT
  Sex: Female
  Weight: 35.866 kg

DRUGS (1)
  1. HUMIRA [Suspect]
     Indication: PRODUCT USED FOR UNKNOWN INDICATION
     Route: 058

REACTIONS (6)
  - DERMATITIS ALLERGIC [None]
  - RASH PRURITIC [None]
  - INJECTION SITE REACTION [None]
  - INJECTION SITE INFLAMMATION [None]
  - INJECTION SITE ERYTHEMA [None]
  - SKIN LESION [None]
